FAERS Safety Report 7490869-9 (Version None)
Quarter: 2011Q2

REPORT INFORMATION
  Report Type: 
  Country: None (occurrence: None)
  Receive Date: 20110519
  Receipt Date: 20110509
  Transmission Date: 20111010
  Serious: Yes (Hospitalization, Other)
  Sender: FDA-Public Use
  Company Number: US-BAYER-US-2007-027946

PATIENT
  Age: 61 Year
  Sex: Female
  Weight: 58.957 kg

DRUGS (12)
  1. ALENDRONATE SODIUM [Concomitant]
     Indication: OSTEOPOROSIS
     Dosage: 70 MG, UNK
  2. CLOPIDOGREL SULFATE [Concomitant]
     Dosage: 75 MG, 1X/DAY
  3. NIFEDIPINE [Concomitant]
     Dosage: 60 MG, 1X/DAY
  4. LISINOPRIL [Concomitant]
     Indication: BLOOD PRESSURE ABNORMAL
     Dosage: 10 MG, UNK
  5. CARVEDILOL [Concomitant]
     Dosage: 25 MG, 2X/DAY
  6. ATORVASTATIN [Concomitant]
     Indication: BLOOD CHOLESTEROL ABNORMAL
     Dosage: 20 MG, 1X/DAY
  7. BACLOFEN [Concomitant]
     Indication: MUSCLE SPASMS
     Dosage: 10 MG, 2X/DAY
  8. BETASERON [Suspect]
     Indication: RELAPSING-REMITTING MULTIPLE SCLEROSIS
     Dosage: 8 MIU, QOD
     Route: 058
     Dates: start: 19990126
  9. POTASSIUM [POTASSIUM] [Concomitant]
  10. DIURETICS [Concomitant]
     Dosage: UNK
  11. SERTRALINE HYDROCHLORIDE [Concomitant]
     Indication: DEPRESSION
     Dosage: 50 MG, 1X/DAY
  12. MODAFINIL [Concomitant]
     Dosage: 100 MG, 1X/DAY

REACTIONS (13)
  - ASTHENIA [None]
  - CHEST DISCOMFORT [None]
  - MUSCULAR WEAKNESS [None]
  - MULTIPLE SCLEROSIS [None]
  - MEMORY IMPAIRMENT [None]
  - CHEST PAIN [None]
  - CARDIAC FLUTTER [None]
  - BLOOD SODIUM DECREASED [None]
  - BLOOD MAGNESIUM DECREASED [None]
  - BLOOD POTASSIUM DECREASED [None]
  - DIZZINESS [None]
  - BLOOD PRESSURE INCREASED [None]
  - FEELING HOT [None]
